FAERS Safety Report 4606516-7 (Version None)
Quarter: 2005Q2

REPORT INFORMATION
  Report Type: 
  Country: None (occurrence: None)
  Receive Date: 20050223
  Receipt Date: 20041012
  Transmission Date: 20051028
  Serious: Yes (Disabling)
  Sender: FDA-Public Use
  Company Number: WAES   0410USA01902

PATIENT
  Sex: Female

DRUGS (4)
  1. ZOCOR [Suspect]
     Indication: BLOOD CHOLESTEROL INCREASED
     Dosage: PO
     Route: 048
     Dates: start: 20031001, end: 20040801
  2. EVISTA [Concomitant]
  3. CALCIUM (UNSPECIFIED) [Concomitant]
  4. GLYBURIDE [Concomitant]

REACTIONS (1)
  - ARTHRALGIA [None]
